FAERS Safety Report 5973266-4 (Version None)
Quarter: 2008Q4

REPORT INFORMATION
  Report Type: 
  Country: None (occurrence: None)
  Receive Date: 20081126
  Receipt Date: 20080114
  Transmission Date: 20090506
  Serious: Yes (Other)
  Sender: FDA-Public Use
  Company Number: 2007BH009389

PATIENT
  Age: 54 Year
  Sex: Male
  Weight: 82.9 kg

DRUGS (12)
  1. DIANEAL [Suspect]
     Indication: PERITONEAL DIALYSIS
     Dosage: IP
     Route: 033
  2. DIANEAL [Suspect]
     Indication: PERITONEAL DIALYSIS
     Dosage: IP
     Route: 033
  3. RENAGEL [Concomitant]
  4. ZEMPLAR [Concomitant]
  5. SODIUM BICARBONATE [Concomitant]
  6. POTASSIUM CHLORIDE [Concomitant]
  7. NOVALYN [Concomitant]
  8. NOVVAS [Concomitant]
  9. LESCOL [Concomitant]
  10. METOLAZONE [Concomitant]
  11. METOCLOPRAMIDE [Concomitant]
  12. PROTONIX [Concomitant]

REACTIONS (5)
  - CATHETER SITE INFECTION [None]
  - DIARRHOEA [None]
  - NAUSEA [None]
  - PERITONITIS BACTERIAL [None]
  - VOMITING [None]
